FAERS Safety Report 5846152-8 (Version None)
Quarter: 2008Q3

REPORT INFORMATION
  Report Type: 
  Country: None (occurrence: None)
  Receive Date: 20080813
  Receipt Date: 20080401
  Transmission Date: 20090109
  Serious: Yes (Other)
  Sender: FDA-Public Use
  Company Number: HP200800047

PATIENT
  Age: 70 Year
  Sex: Female
  Weight: 53.1 kg

DRUGS (3)
  1. CLODERM [Suspect]
     Indication: ROSACEA
     Dosage: TID, TOPICAL
     Route: 061
     Dates: start: 20070901, end: 20070901
  2. MINOCYCLINE HCL [Suspect]
     Indication: ROSACEA
     Dates: start: 20070901, end: 20070901
  3. FOSAMAX [Concomitant]

REACTIONS (4)
  - CLAVICLE FRACTURE [None]
  - DRUG INEFFECTIVE [None]
  - FALL [None]
  - SYNCOPE [None]
